FAERS Safety Report 6110248-6 (Version None)
Quarter: 2009Q1

REPORT INFORMATION
  Report Type: 
  Country: None (occurrence: None)
  Receive Date: 20090309
  Receipt Date: 20090309
  Transmission Date: 20090719
  Serious: Yes (Life-Threatening)
  Sender: FDA-Public Use
  Company Number: None

PATIENT
  Age: 46 Year
  Sex: Female
  Weight: 56.6996 kg

DRUGS (6)
  1. CITALOPRAM HYDROBROMIDE [Suspect]
     Dosage: BENADRYL 1 SHOT
  2. KLONOPIN [Suspect]
     Dosage: STEROIDS 1 SHOT
  3. CELEXA [Concomitant]
  4. TYLENOL (CAPLET) [Concomitant]
  5. MELANOTIN [Concomitant]
  6. ACYCLOVIR [Concomitant]

REACTIONS (1)
  - DRUG HYPERSENSITIVITY [None]
